FAERS Safety Report 24579718 (Version 2)
Quarter: 2024Q4

REPORT INFORMATION
  Report Type: Spontaneous
  Country: CN (occurrence: CN)
  Receive Date: 20241105
  Receipt Date: 20241107
  Transmission Date: 20250114
  Serious: Yes (Other)
  Sender: SANDOZ
  Company Number: CN-002147023-NVSC2024CN208021

PATIENT
  Age: 69 Year
  Sex: Female
  Weight: 56 kg

DRUGS (1)
  1. DEXAMETHASONE\TOBRAMYCIN [Suspect]
     Active Substance: DEXAMETHASONE\TOBRAMYCIN
     Indication: Infection
     Dosage: 0.02 ML, QD(0.02 ML (6X1))
     Route: 047
     Dates: start: 20241010, end: 20241010

REACTIONS (3)
  - Blood pressure increased [Recovering/Resolving]
  - Conjunctival hyperaemia [Recovering/Resolving]
  - Eyelid oedema [Recovering/Resolving]

NARRATIVE: CASE EVENT DATE: 20241010
